FAERS Safety Report 7961752-7 (Version None)
Quarter: 2011Q4

REPORT INFORMATION
  Report Type: 
  Country: None (occurrence: None)
  Receive Date: 20111202
  Receipt Date: 20111202
  Transmission Date: 20120403
  Serious: Yes (Other)
  Sender: FDA-Public Use
  Company Number: None

PATIENT
  Sex: Female
  Weight: 87.5442 kg

DRUGS (2)
  1. FLAGYL [Concomitant]
  2. CIPRO [Suspect]
     Indication: DIVERTICULITIS
     Dosage: 1 TAB PO BID ONCE A DAY BY MOUTH
     Route: 048
     Dates: start: 20111012, end: 20111015

REACTIONS (5)
  - JOINT SWELLING [None]
  - WEIGHT BEARING DIFFICULTY [None]
  - TENDON DISORDER [None]
  - JOINT WARMTH [None]
  - CHONDROPATHY [None]
